FAERS Safety Report 24730653 (Version 1)
Quarter: 2024Q4

REPORT INFORMATION
  Report Type: Spontaneous
  Country: DE (occurrence: DE)
  Receive Date: 20241213
  Receipt Date: 20241213
  Transmission Date: 20250114
  Serious: Yes (Other)
  Sender: AUROBINDO
  Company Number: DE-002147023-NVSC2024DE227350

PATIENT
  Sex: Female
  Weight: 65 kg

DRUGS (6)
  1. LETROZOLE [Suspect]
     Active Substance: LETROZOLE
     Indication: Hormone receptor positive HER2 negative breast cancer
     Dosage: 2.5 MILLIGRAM, ONCE A DAY [2.5 MG, QD]
     Route: 048
     Dates: start: 20201209
  2. KISQALI [Suspect]
     Active Substance: RIBOCICLIB
     Indication: Hormone receptor positive HER2 negative breast cancer
     Dosage: 600 MILLIGRAM, ONCE A DAY [600 MG, QD (SCHEMA 21 DAYS INTAKE, 7 DAYS PAUSE)]
     Route: 048
     Dates: start: 20201009, end: 20201105
  3. KISQALI [Suspect]
     Active Substance: RIBOCICLIB
     Dosage: 400 MILLIGRAM, ONCE A DAY [400 MG, QD (SCHEMA 21 DAYS INTAKE, 7 DAYS PAUSE)]
     Route: 048
     Dates: start: 20201112, end: 20201209
  4. KISQALI [Suspect]
     Active Substance: RIBOCICLIB
     Dosage: 400 MILLIGRAM, ONCE A DAY [400 MG, QD  (SCHEMA 21 DAYS INTAKE, 7 DAYS PAUSE)]
     Route: 048
     Dates: start: 20201219, end: 20220114
  5. KISQALI [Suspect]
     Active Substance: RIBOCICLIB
     Dosage: 200 MILLIGRAM, ONCE A DAY [200 MG, QD  (SCHEMA 21 DAYS INTAKE, 7 DAYS PAUSE)]
     Route: 048
     Dates: start: 20220115, end: 20221111
  6. KISQALI [Suspect]
     Active Substance: RIBOCICLIB
     Dosage: 200 MILLIGRAM, ONCE A DAY [200 MG, QD  (SCHEMA 21 DAYS INTAKE, 7 DAYS PAUSE)]
     Route: 048
     Dates: start: 20230106

REACTIONS (1)
  - Thrombocytopenia [Recovered/Resolved]

NARRATIVE: CASE EVENT DATE: 20240819
